FAERS Safety Report 4578387-9 (Version None)
Quarter: 2005Q1

REPORT INFORMATION
  Report Type: 
  Country: None (occurrence: None)
  Receive Date: 20050211
  Receipt Date: 20050201
  Transmission Date: 20050727
  Serious: Yes (Hospitalization)
  Sender: FDA-Public Use
  Company Number: US-BRISTOL-MYERS SQUIBB COMPANY-12845616

PATIENT
  Age: 58 Year
  Sex: Male
  Weight: 84 kg

DRUGS (5)
  1. CISPLATIN [Suspect]
     Indication: SMALL CELL LUNG CANCER STAGE UNSPECIFIED
     Dosage: 1ST DOSE: 13AUG02
     Route: 042
     Dates: start: 20020820, end: 20020820
  2. CAMPTOSAR [Suspect]
     Indication: SMALL CELL LUNG CANCER STAGE UNSPECIFIED
     Dosage: 1ST DOSE: 13AUG02
     Route: 042
     Dates: start: 20020820, end: 20020820
  3. DEXAMETHASONE [Suspect]
     Indication: PREMEDICATION
     Dates: start: 20020814, end: 20020816
  4. OXYCODONE HCL [Suspect]
     Indication: PAIN
     Route: 048
     Dates: start: 20020808, end: 20020824
  5. PROCHLORPERAZINE [Concomitant]
     Indication: NAUSEA
     Dates: start: 20020813, end: 20020824

REACTIONS (3)
  - ABDOMINAL PAIN [None]
  - NEUTROPENIA [None]
  - PYREXIA [None]
